FAERS Safety Report 25511393 (Version 1)
Quarter: 2025Q3

REPORT INFORMATION
  Report Type: Spontaneous
  Country: US (occurrence: US)
  Receive Date: 20250703
  Receipt Date: 20250703
  Transmission Date: 20251021
  Serious: No
  Sender: RADIUS PHARM
  Company Number: US-RADIUS HEALTH INC.-2024US004273

PATIENT
  Sex: Female

DRUGS (1)
  1. TYMLOS [Suspect]
     Active Substance: ABALOPARATIDE
     Indication: Product used for unknown indication
     Route: 058

REACTIONS (6)
  - Product use complaint [Unknown]
  - Fall [Unknown]
  - Spinal column injury [Unknown]
  - Unevaluable event [Unknown]
  - Therapy interrupted [Unknown]
  - Foot fracture [Unknown]
